FAERS Safety Report 8817949 (Version 1)
Quarter: 2012Q4

REPORT INFORMATION
  Report Type: 
  Country: GB (occurrence: GB)
  Receive Date: 20121001
  Receipt Date: 20121001
  Transmission Date: 20130627
  Serious: Yes (Life-Threatening, Other)
  Sender: FDA-Public Use
  Company Number: GB-ASTRAZENECA-2012SE74508

PATIENT
  Age: 74 Year
  Sex: Female
  Weight: 46 kg

DRUGS (3)
  1. BUPIVACAINE [Suspect]
     Indication: POSTOPERATIVE ANALGESIA
  2. BUPIVACAINE [Suspect]
     Indication: POSTOPERATIVE ANALGESIA
  3. MORPHINE [Concomitant]
     Indication: POSTOPERATIVE ANALGESIA
     Route: 042

REACTIONS (2)
  - Liver disorder [Recovered/Resolved]
  - Grand mal convulsion [Recovered/Resolved]
